FAERS Safety Report 19125912 (Version 1)
Quarter: 2021Q2

REPORT INFORMATION
  Report Type: Report from Study
  Country: US (occurrence: US)
  Receive Date: 20210413
  Receipt Date: 20210413
  Transmission Date: 20210717
  Serious: Yes (Other)
  Sender: FDA-Public Use
  Company Number: US-PFIZER INC-2021197087

PATIENT

DRUGS (2)
  1. TOBRAMYCIN. [Suspect]
     Active Substance: TOBRAMYCIN
     Indication: ABDOMINAL INFECTION
     Dosage: UNK, 3X/DAY UP TO 5 MG/[KG. D)
     Route: 042
  2. CLINDAMYCIN PHOSPHATE. [Suspect]
     Active Substance: CLINDAMYCIN PHOSPHATE
     Indication: ABDOMINAL INFECTION
     Dosage: 900 MG, 3X/DAY, 900 MG (EVERY 8 HOURS VIA A 20?MINUTE INTRAVENOUS INFUSION)
     Route: 042

REACTIONS (2)
  - Sepsis [Unknown]
  - Renal failure [Unknown]
